FAERS Safety Report 7199651-3 (Version None)
Quarter: 2010Q4

REPORT INFORMATION
  Report Type: 
  Country: None (occurrence: None)
  Receive Date: 20101228
  Receipt Date: 20101220
  Transmission Date: 20110411
  Serious: Yes (Hospitalization)
  Sender: FDA-Public Use
  Company Number: DE-AMGEN-DEUSP2010011719

PATIENT

DRUGS (6)
  1. ENBREL [Suspect]
     Indication: RHEUMATOID ARTHRITIS
     Dosage: 50 MG, WEEKLY
     Dates: start: 20040603
  2. ENBREL [Suspect]
  3. METHOTREXATE [Concomitant]
     Dosage: 10 MG, FREQUENCY UNKNOWN
     Route: 048
  4. FOLIC ACID [Concomitant]
     Dosage: UNK
  5. PREDNISOLONE [Concomitant]
     Dosage: 5 MG, FREQUENCY UNKNOWN
  6. BISOPROLOL [Concomitant]
     Dosage: UNK

REACTIONS (1)
  - RHEUMATOID NODULE REMOVAL [None]
